FAERS Safety Report 9520543 (Version 2)
Quarter: 2013Q3

REPORT INFORMATION
  Report Type: Report from Study
  Country: AU (occurrence: AU)
  Receive Date: 20130913
  Receipt Date: 20130930
  Transmission Date: 20140515
  Serious: Yes (Hospitalization)
  Sender: FDA-Public Use
  Company Number: AU-BIOGENIDEC-2013BI085131

PATIENT
  Age: 70 Year
  Sex: Female

DRUGS (9)
  1. TYSABRI [Suspect]
     Indication: RELAPSING-REMITTING MULTIPLE SCLEROSIS
     Route: 042
     Dates: start: 20080917
  2. TYSABRI [Suspect]
     Indication: RELAPSING-REMITTING MULTIPLE SCLEROSIS
     Route: 042
     Dates: start: 20130412
  3. PARACETAMOL [Concomitant]
     Indication: ARTHRALGIA
     Dates: start: 19940401
  4. VITAMIN D [Concomitant]
     Indication: VITAMIN D DEFICIENCY
     Dates: start: 20120817
  5. CELECOXIB [Concomitant]
     Indication: ARTHRALGIA
     Dates: start: 20020101
  6. PROGYNOVA [Concomitant]
     Indication: HORMONE REPLACEMENT THERAPY
     Dates: start: 19840801
  7. OXYCONTIN [Concomitant]
     Indication: NEURALGIA
     Dates: start: 20130601
  8. ENDONE [Concomitant]
     Indication: BREAKTHROUGH PAIN
     Dates: start: 20100601
  9. GABAPENTIN [Concomitant]
     Indication: SENSORY DISTURBANCE
     Dates: start: 20121123

REACTIONS (1)
  - Osteoarthritis [Recovered/Resolved]
